FAERS Safety Report 7271820-3 (Version None)
Quarter: 2011Q1

REPORT INFORMATION
  Report Type: 
  Country: None (occurrence: None)
  Receive Date: 20110131
  Receipt Date: 20110131
  Transmission Date: 20110831
  Serious: No
  Sender: FDA-Public Use
  Company Number: None

PATIENT
  Age: 35 Year
  Sex: Female
  Weight: 76.6579 kg

DRUGS (4)
  1. OXCARBAZEPINE [Concomitant]
  2. DULCOLAX [Suspect]
     Indication: INFREQUENT BOWEL MOVEMENTS
     Dosage: 10 MG ONCE RECTAL
     Route: 054
     Dates: start: 20110129, end: 20110129
  3. INVEGA [Concomitant]
  4. GEODON [Concomitant]

REACTIONS (2)
  - PRODUCT SOLUBILITY ABNORMAL [None]
  - NO THERAPEUTIC RESPONSE [None]
